FAERS Safety Report 6465340-3 (Version None)
Quarter: 2009Q4

REPORT INFORMATION
  Report Type: 
  Country: None (occurrence: None)
  Receive Date: 20091119
  Receipt Date: 20090918
  Transmission Date: 20100525
  Serious: No
  Sender: FDA-Public Use
  Company Number: WAES 0909USA02794

PATIENT
  Age: 72 Year
  Sex: Male

DRUGS (3)
  1. JANUVIA [Suspect]
     Indication: TYPE 2 DIABETES MELLITUS
     Dosage: 100 MG/DAILY/PO
     Route: 048
     Dates: start: 20080701, end: 20090911
  2. ACTOS [Concomitant]
  3. SYNTHROID [Concomitant]

REACTIONS (5)
  - EPISTAXIS [None]
  - EYE ALLERGY [None]
  - FATIGUE [None]
  - MALAISE [None]
  - NASOPHARYNGITIS [None]
